FAERS Safety Report 16574007 (Version 3)
Quarter: 2019Q3

REPORT INFORMATION
  Report Type: Report from Study
  Country: KR (occurrence: KR)
  Receive Date: 20190715
  Receipt Date: 20190829
  Transmission Date: 20191004
  Serious: Yes (Hospitalization, Other)
  Sender: FDA-Public Use
  Company Number: KR-009507513-1907KOR004767

PATIENT
  Sex: Female

DRUGS (6)
  1. PEMBROLIZUMAB. [Suspect]
     Active Substance: PEMBROLIZUMAB
     Dosage: QUANTITY: 2 ;DAYS: 1
     Dates: start: 20190623, end: 20190623
  2. PEMBROLIZUMAB. [Suspect]
     Active Substance: PEMBROLIZUMAB
     Dosage: QUANTITY: 2 ;DAYS: 1
     Dates: start: 20190718, end: 20190718
  3. SODIUM CHLORIDE. [Concomitant]
     Active Substance: SODIUM CHLORIDE
     Dosage: 100 ML (BAG). QUANTITY: 1 ;DAYS: 1
     Dates: start: 20190718, end: 20190718
  4. PEMBROLIZUMAB. [Suspect]
     Active Substance: PEMBROLIZUMAB
     Indication: OVARIAN NEOPLASM
     Dosage: QUANTITY: 2 ;DAYS: 1
     Dates: start: 20190528, end: 20190528
  5. PEMBROLIZUMAB. [Suspect]
     Active Substance: PEMBROLIZUMAB
     Dosage: QUANTITY: 2 ;DAYS: 1
     Dates: start: 20190814, end: 20190814
  6. SODIUM CHLORIDE. [Concomitant]
     Active Substance: SODIUM CHLORIDE
     Dosage: QUANTITY: 1 ;DAYS: 1
     Dates: start: 20190528, end: 20190528

REACTIONS (10)
  - Transfusion [Unknown]
  - Adverse event [Unknown]
  - Adverse event [Unknown]
  - Transfusion [Unknown]
  - Ureteral stent insertion [Unknown]
  - Chest tube insertion [Unknown]
  - Inappropriate schedule of product administration [Unknown]
  - Cerebral infarction [Unknown]
  - Adverse event [Unknown]
  - Product use in unapproved indication [Unknown]

NARRATIVE: CASE EVENT DATE: 2019
